FAERS Safety Report 5742114-X (Version None)
Quarter: 2008Q2

REPORT INFORMATION
  Report Type: 
  Country: None (occurrence: None)
  Receive Date: 20080514
  Receipt Date: 20080514
  Transmission Date: 20081010
  Serious: Yes (Other)
  Sender: FDA-Public Use
  Company Number: None

PATIENT
  Sex: Female
  Weight: 83.9154 kg

DRUGS (2)
  1. FLUOXETINE HCL [Suspect]
     Indication: PANIC DISORDER
     Dosage: 20 MG 1X PO
     Route: 048
  2. FLUOXETINE HCL [Suspect]
     Dosage: 40 MG   1X          PO
     Route: 048

REACTIONS (5)
  - ANAESTHESIA [None]
  - FEMALE ORGASMIC DISORDER [None]
  - FEMALE SEXUAL DYSFUNCTION [None]
  - GENITAL DISORDER FEMALE [None]
  - LIBIDO DECREASED [None]
